FAERS Safety Report 8046870-X (Version None)
Quarter: 2012Q1

REPORT INFORMATION
  Report Type: 
  Country: None (occurrence: None)
  Receive Date: 20120116
  Receipt Date: 20120109
  Transmission Date: 20120608
  Serious: Yes (Life-Threatening, Other)
  Sender: FDA-Public Use
  Company Number: US-BAYER-2011-018998

PATIENT
  Age: 16 Year
  Sex: Female
  Weight: 72.562 kg

DRUGS (11)
  1. MAGNESIUM [Concomitant]
     Dosage: ONE TABLET DAIYL
     Route: 048
  2. YAZ [Suspect]
     Indication: MENSTRUATION IRREGULAR
     Dosage: UNK
     Route: 048
     Dates: start: 20071101, end: 20090701
  3. PRILOSEC [Concomitant]
     Dosage: 40 MG, DAILY
     Route: 048
  4. CALCIUM [Concomitant]
     Dosage: ONE TABLET DAIYL
     Route: 048
  5. MULTI-VITAMIN [Concomitant]
     Dosage: ONE DAILY
     Route: 048
  6. ROLAIDS [Concomitant]
     Dosage: 1 CHEW TAB AS NEEDED
     Route: 048
  7. ZINC [Concomitant]
     Dosage: ONE TABLET DAILY
     Route: 048
  8. YAZ [Suspect]
     Indication: CYST
  9. MIDOL EXTENDED RELIEF CAPLETS [Concomitant]
     Dosage: 2 CAPTEL
     Route: 048
  10. MIRALAX [Concomitant]
     Dosage: AS DIRECTED
     Route: 048
  11. FISH OIL [Concomitant]
     Dosage: DAILY DOSE 1200 MG
     Route: 048

REACTIONS (8)
  - GENERAL PHYSICAL HEALTH DETERIORATION [None]
  - GALLBLADDER NON-FUNCTIONING [None]
  - PAIN [None]
  - ORGAN FAILURE [None]
  - INJURY [None]
  - ANXIETY [None]
  - GALLBLADDER DISORDER [None]
  - CHOLELITHIASIS [None]
